FAERS Safety Report 9249508 (Version 3)
Quarter: 2013Q2

REPORT INFORMATION
  Report Type: Spontaneous
  Country: US (occurrence: US)
  Receive Date: 20130423
  Receipt Date: 20130603
  Transmission Date: 20140414
  Serious: Yes (Death)
  Sender: FDA-Public Use
  Company Number: US-UCBSA-083538

PATIENT
  Age: 39 Year
  Sex: Male

DRUGS (6)
  1. VIMPAT [Suspect]
     Indication: CONVULSION
     Dosage: (SLOWLY INCREASED)
     Route: 048
     Dates: start: 20100901
  2. VIMPAT [Suspect]
     Indication: CONVULSION
     Dosage: 150 MG
     Route: 048
  3. KEPPRA XR [Suspect]
     Indication: CONVULSION
     Dosage: 1000 2 TIMES TOTAL 2000
     Dates: start: 200910
  4. KEPPRA XR [Suspect]
     Indication: CONVULSION
     Dosage: 750 MG
  5. ATIVAN [Concomitant]
     Indication: CONVULSION
  6. DEPAKOTE ER [Concomitant]
     Dosage: 100

REACTIONS (1)
  - Convulsion [Fatal]
